FAERS Safety Report 17914959 (Version 1)
Quarter: 2020Q2

REPORT INFORMATION
  Report Type: Report from Study
  Country: IT (occurrence: IT)
  Receive Date: 20200619
  Receipt Date: 20200619
  Transmission Date: 20200714
  Serious: Yes (Other)
  Sender: FDA-Public Use
  Company Number: IT-TEVA-2020-IT-1238293

PATIENT
  Age: 78 Year
  Sex: Female

DRUGS (7)
  1. TRUSOPT 20 MG/ML COLLIRIO, SOLUZIONE [Concomitant]
  2. IBANDRONIC ACID. [Concomitant]
     Active Substance: IBANDRONIC ACID
  3. RAMIPRIL. [Suspect]
     Active Substance: RAMIPRIL
     Indication: HYPERTENSION
     Dosage: 10 MG
     Route: 048
  4. MEDROL [Suspect]
     Active Substance: METHYLPREDNISOLONE
     Indication: MYALGIA
     Dosage: 1 DOSAGE FORMS
     Route: 048
     Dates: start: 20200218, end: 20200221
  5. FLECAINIDE [Concomitant]
     Active Substance: FLECAINIDE
     Dosage: 100 MG
  6. LANSOPRAZOLE. [Concomitant]
     Active Substance: LANSOPRAZOLE
  7. ACETYLSALICYLIC ACID [Concomitant]
     Active Substance: ASPIRIN
     Dosage: 100 MG

REACTIONS (2)
  - Blood pressure increased [Recovered/Resolved]
  - Drug interaction [Recovered/Resolved]

NARRATIVE: CASE EVENT DATE: 20200221
